FAERS Safety Report 7342578-4 (Version None)
Quarter: 2011Q1

REPORT INFORMATION
  Report Type: 
  Country: None (occurrence: None)
  Receive Date: 20110310
  Receipt Date: 20110111
  Transmission Date: 20110831
  Serious: Yes (Death)
  Sender: FDA-Public Use
  Company Number: US-BAYER-201039756NA

PATIENT
  Sex: Female
  Weight: 70.295 kg

DRUGS (7)
  1. ALBUTEROL [Concomitant]
     Indication: ASTHMA
  2. HYDROCHLOROTHIAZIDE [Concomitant]
     Indication: HYPERTENSION
     Dosage: 25 MG, UNK
     Route: 048
  3. YAZ [Suspect]
     Indication: PRODUCT USED FOR UNKNOWN INDICATION
     Route: 048
     Dates: start: 20081001, end: 20090606
  4. NEXIUM [Concomitant]
     Indication: GASTROOESOPHAGEAL REFLUX DISEASE
  5. IBUPROFEN [Concomitant]
     Indication: CARPAL TUNNEL SYNDROME
     Dosage: 800 MG, UNK
     Route: 048
  6. GABAPENTIN [Concomitant]
     Indication: CARPAL TUNNEL SYNDROME
     Dosage: 100 MG, UNK
     Route: 048
  7. OXYCODONE HCL AND ACETAMINOPHEN [Concomitant]
     Indication: CARPAL TUNNEL SYNDROME
     Route: 048

REACTIONS (1)
  - PULMONARY EMBOLISM [None]
